FAERS Safety Report 23128564 (Version 2)
Quarter: 2024Q1

REPORT INFORMATION
  Report Type: Report from Study
  Country: CA (occurrence: CA)
  Receive Date: 20231031
  Receipt Date: 20240101
  Transmission Date: 20240410
  Serious: Yes (Hospitalization)
  Sender: FDA-Public Use
  Company Number: CA-TAKEDA-2023TUS103557

PATIENT
  Age: 66 Year
  Sex: Male

DRUGS (1)
  1. VEDOLIZUMAB [Suspect]
     Active Substance: VEDOLIZUMAB
     Indication: Crohn^s disease
     Dosage: 300 MILLIGRAM
     Route: 042
     Dates: start: 20220222

REACTIONS (2)
  - Accident [Unknown]
  - Limb injury [Unknown]

NARRATIVE: CASE EVENT DATE: 20230901
